FAERS Safety Report 6152790-8 (Version None)
Quarter: 2009Q2

REPORT INFORMATION
  Report Type: 
  Country: None (occurrence: None)
  Receive Date: 20090409
  Receipt Date: 20090327
  Transmission Date: 20091009
  Serious: Yes (Hospitalization)
  Sender: FDA-Public Use
  Company Number: 231692K09USA

PATIENT
  Age: 33 Year
  Sex: Female
  Weight: 115 kg

DRUGS (5)
  1. REBIF [Suspect]
     Indication: MULTIPLE SCLEROSIS
     Dosage: 44 MCG, 3 IN 1 WEEKS, SUBCUTANEOUS
     Route: 058
     Dates: start: 20080415
  2. CALCIUM (CALCIUM-SANDOZ /00009901/) [Concomitant]
  3. MULTIVITAMIN (MULTIVITAMIN /00831701/) [Concomitant]
  4. OXYCODONE HCL [Concomitant]
  5. GLUCOPHAGE [Concomitant]

REACTIONS (5)
  - BLOOD PRESSURE INCREASED [None]
  - DIARRHOEA [None]
  - DRUG HYPERSENSITIVITY [None]
  - PYELONEPHRITIS ACUTE [None]
  - SPEECH DISORDER [None]
